FAERS Safety Report 25075194 (Version 1)
Quarter: 2025Q1

REPORT INFORMATION
  Report Type: Spontaneous
  Country: JP (occurrence: JP)
  Receive Date: 20250313
  Receipt Date: 20250313
  Transmission Date: 20250409
  Serious: Yes (Hospitalization)
  Sender: MERCK SHARP & DOHME LLC
  Company Number: JP-009507513-2263140

PATIENT
  Age: 72 Year
  Sex: Male
  Weight: 53 kg

DRUGS (4)
  1. KEYTRUDA [Suspect]
     Active Substance: PEMBROLIZUMAB
     Indication: Lung adenocarcinoma stage IV
     Route: 041
     Dates: start: 20241017, end: 20241017
  2. CELECOXIB [Concomitant]
     Active Substance: CELECOXIB
  3. TEPRENONE [Concomitant]
     Active Substance: TEPRENONE
  4. AZULFIDINE EN-TABS [Concomitant]
     Active Substance: SULFASALAZINE

REACTIONS (3)
  - Neutrophil count decreased [Recovering/Resolving]
  - White blood cell count decreased [Recovering/Resolving]
  - Pyrexia [Recovering/Resolving]

NARRATIVE: CASE EVENT DATE: 20241115
